FAERS Safety Report 9054074 (Version 2)
Quarter: 2013Q1

REPORT INFORMATION
  Report Type: Spontaneous
  Country: AT (occurrence: AT)
  Receive Date: 20130208
  Receipt Date: 20130221
  Transmission Date: 20140127
  Serious: Yes (Other)
  Sender: FDA-Public Use
  Company Number: AT-JNJFOC-20130201235

PATIENT
  Age: 58 Year
  Sex: Female

DRUGS (1)
  1. REMICADE [Suspect]
     Indication: PSORIATIC ARTHROPATHY
     Route: 042
     Dates: start: 20081015

REACTIONS (4)
  - Urinary tract infection [Recovered/Resolved]
  - Mastoiditis [Recovered/Resolved]
  - Neuralgia [Recovered/Resolved]
  - Respiratory tract infection [Recovered/Resolved]
